FAERS Safety Report 6813698-5 (Version None)
Quarter: 2010Q3

REPORT INFORMATION
  Report Type: 
  Country: None (occurrence: None)
  Receive Date: 20100701
  Receipt Date: 20100622
  Transmission Date: 20110219
  Serious: Yes (Hospitalization)
  Sender: FDA-Public Use
  Company Number: US-AMGEN-KDL420207

PATIENT
  Sex: Female

DRUGS (1)
  1. ENBREL [Suspect]
     Indication: RHEUMATOID ARTHRITIS
     Route: 058

REACTIONS (10)
  - CEREBROVASCULAR ACCIDENT [None]
  - FALL [None]
  - HIP FRACTURE [None]
  - INJECTION SITE PAIN [None]
  - MEMORY IMPAIRMENT [None]
  - PNEUMONIA [None]
  - RESPIRATORY TRACT INFECTION [None]
  - RHEUMATOID ARTHRITIS [None]
  - UPPER LIMB FRACTURE [None]
  - VISUAL IMPAIRMENT [None]
